FAERS Safety Report 4727742-2 (Version None)
Quarter: 2005Q3

REPORT INFORMATION
  Report Type: 
  Country: None (occurrence: None)
  Receive Date: 20050727
  Receipt Date: 20050711
  Transmission Date: 20060218
  Serious: Yes (Hospitalization)
  Sender: FDA-Public Use
  Company Number: DSA_26672_2005

PATIENT
  Age: 36 Year
  Sex: Female

DRUGS (5)
  1. TAVOR [Suspect]
     Dosage: 2 MG ONCE PO
     Route: 048
     Dates: start: 20050611, end: 20050611
  2. DIAZEPAM [Suspect]
     Dosage: 20 MG ONCE PO
     Route: 048
     Dates: start: 20050611, end: 20050611
  3. NEUROCIL [Suspect]
     Dosage: 200 MG ONCE PO
     Route: 048
     Dates: start: 20050611, end: 20050611
  4. STILNOX [Suspect]
     Dosage: 2 TAB ONCE PO
     Route: 048
     Dates: start: 20050611, end: 20050611
  5. TRUXAL [Suspect]
     Dosage: 100 MG ONCE PO
     Route: 048
     Dates: start: 20050611, end: 20050611

REACTIONS (4)
  - AGITATION [None]
  - DIARRHOEA [None]
  - INTENTIONAL MISUSE [None]
  - OVERDOSE [None]
